FAERS Safety Report 7150808-7 (Version None)
Quarter: 2010Q4

REPORT INFORMATION
  Report Type: 
  Country: None (occurrence: None)
  Receive Date: 20101126
  Receipt Date: 20101117
  Transmission Date: 20110411
  Serious: Yes (Disabling, Other)
  Sender: FDA-Public Use
  Company Number: 2010SP028818

PATIENT
  Age: 27 Year
  Sex: Female

DRUGS (2)
  1. DESLORATADINE AND PSEUDOEPHEDRINE SULFATE [Suspect]
     Indication: EAR DISCOMFORT
     Dosage: PO
     Route: 048
     Dates: start: 20100501, end: 20100507
  2. HELIPAK [Concomitant]

REACTIONS (17)
  - ABDOMINAL PAIN UPPER [None]
  - ANXIETY [None]
  - DEPRESSION [None]
  - DISABILITY [None]
  - EAR DISCOMFORT [None]
  - EAR DISORDER [None]
  - EAR PAIN [None]
  - HELICOBACTER INFECTION [None]
  - IRRITABILITY [None]
  - MENTAL DISORDER [None]
  - NERVE INJURY [None]
  - NERVOUS SYSTEM DISORDER [None]
  - PANIC DISORDER [None]
  - RESTLESSNESS [None]
  - TINNITUS [None]
  - TRIGEMINAL NERVE DISORDER [None]
  - TRIGEMINAL NEURALGIA [None]
